FAERS Safety Report 4365177-5 (Version None)
Quarter: 2004Q2

REPORT INFORMATION
  Report Type: 
  Country: None (occurrence: None)
  Receive Date: 20040525
  Receipt Date: 20040402
  Transmission Date: 20050107
  Serious: Yes (Other)
  Sender: FDA-Public Use
  Company Number: PHEH2004US01832

PATIENT
  Sex: Female

DRUGS (9)
  1. ZELNORM [Suspect]
     Indication: CONSTIPATION
     Dosage: 2 MG, BID, ORAL
     Route: 048
     Dates: start: 20040204
  2. ATENOLOL [Suspect]
     Indication: HYPERTENSION
     Dosage: 50 MG, QD IN PM, ORAL
     Route: 048
  3. CARDIZEM [Concomitant]
  4. LASIX /SCH/(FUROSEMIDE SODIUM) [Concomitant]
  5. RELAFEN [Concomitant]
  6. SYNTHROID [Concomitant]
  7. AMBIEN [Concomitant]
  8. UROCIT-K (POTASSIUM CITRATE) [Concomitant]
  9. BETA BLOCKING AGENTS [Concomitant]

REACTIONS (1)
  - BRADYCARDIA [None]
